FAERS Safety Report 8691911 (Version 3)
Quarter: 2012Q4

REPORT INFORMATION
  Report Type: 
  Country: JP (occurrence: JP)
  Receive Date: 20120730
  Receipt Date: 20120912
  Transmission Date: 20130627
  Serious: Yes (Death, Disabling)
  Sender: FDA-Public Use
  Company Number: JP-ROCHE-1093354

PATIENT
  Sex: Male

DRUGS (10)
  1. ALTEPLASE [Suspect]
     Indication: THROMBOTIC CEREBRAL INFARCTION
     Route: 065
     Dates: start: 20110418, end: 20110418
  2. BAYASPIRIN [Suspect]
     Indication: THROMBOTIC CEREBRAL INFARCTION
     Route: 048
     Dates: start: 20110418, end: 20110418
  3. PLAVIX [Suspect]
     Indication: THROMBOTIC CEREBRAL INFARCTION
     Route: 048
     Dates: start: 20110418, end: 20110418
  4. HEPARIN SODIUM [Suspect]
     Indication: THROMBOTIC CEREBRAL INFARCTION
     Route: 042
     Dates: start: 20110418, end: 20110418
  5. RADICUT [Concomitant]
     Route: 065
     Dates: start: 20110418, end: 20110502
  6. ALEVIATIN [Concomitant]
     Route: 042
     Dates: start: 20110418, end: 20110422
  7. PERDIPINE [Concomitant]
     Route: 042
     Dates: start: 20110418, end: 20110418
  8. PROTAMINE [Concomitant]
     Route: 042
     Dates: start: 20110419, end: 20110419
  9. SULBACILLINE [Concomitant]
     Route: 065
     Dates: start: 20110423, end: 20110426
  10. GLYCEOL [Concomitant]
     Route: 042
     Dates: start: 20110423, end: 20110426

REACTIONS (3)
  - Cerebral haemorrhage [Unknown]
  - Subarachnoid haemorrhage [Unknown]
  - Death [Fatal]
